FAERS Safety Report 12380238 (Version 1)
Quarter: 2016Q2

REPORT INFORMATION
  Report Type: Spontaneous
  Country: US (occurrence: US)
  Receive Date: 20160518
  Receipt Date: 20160518
  Transmission Date: 20160815
  Serious: Yes (Other)
  Sender: FDA-Public Use
  Company Number: US-STRIDES ARCOLAB LIMITED-2015SP001432

PATIENT

DRUGS (3)
  1. PROBIOTIC ACIDOPHILUS /00079701/ [Suspect]
     Active Substance: LACTOBACILLUS ACIDOPHILUS
     Indication: CLOSTRIDIUM DIFFICILE COLITIS
  2. VANCOMYCIN [Suspect]
     Active Substance: VANCOMYCIN
     Indication: CLOSTRIDIUM DIFFICILE COLITIS
     Dosage: 125 MG, EVERY 6 HRS
     Route: 048
     Dates: end: 2013
  3. METRONIDAZOLE. [Suspect]
     Active Substance: METRONIDAZOLE
     Indication: CLOSTRIDIUM DIFFICILE COLITIS

REACTIONS (2)
  - Dysbacteriosis [Unknown]
  - Drug ineffective [Unknown]
